FAERS Safety Report 4650546-6 (Version None)
Quarter: 2005Q2

REPORT INFORMATION
  Report Type: 
  Country: None (occurrence: None)
  Receive Date: 20050429
  Receipt Date: 20050414
  Transmission Date: 20051028
  Serious: Yes (Disabling)
  Sender: FDA-Public Use
  Company Number: 214063

PATIENT
  Sex: 0

DRUGS (5)
  1. HERCEPTIN [Suspect]
     Indication: BREAST CANCER
     Dosage: SEE IMAGE
  2. DOXORUBICIN HYDROCHLORIDE [Suspect]
     Indication: BREAST CANCER
     Dosage: 60 MG/M2, Q3W, INTRAVENOUS
     Route: 042
  3. CYCLOPHOSPHAMIDE [Suspect]
     Indication: DRUG USE FOR UNKNOWN INDICATION
     Dosage: 600 MG/M2, Q3W, INTRAVENOUS
     Route: 042
  4. TAXOL [Suspect]
     Indication: BREAST CANCER
     Dosage: 80 MG/M2, 1/WEEK, INTRAVENOUS
     Route: 042
  5. TAMOXIFEN CITRATE [Concomitant]

REACTIONS (1)
  - RADIATION SKIN INJURY [None]
